FAERS Safety Report 4726152-1 (Version None)
Quarter: 2005Q3

REPORT INFORMATION
  Report Type: 
  Country: None (occurrence: None)
  Receive Date: 20050727
  Receipt Date: 20050715
  Transmission Date: 20060218
  Serious: Yes (Other)
  Sender: FDA-Public Use
  Company Number: US-JNJFOC-20050703136

PATIENT
  Age: 14 Year
  Sex: Male

DRUGS (4)
  1. CONCERTA [Suspect]
     Indication: BIPOLAR DISORDER
     Route: 048
  2. CONCERTA [Suspect]
     Route: 048
  3. CLONIDINE [Concomitant]
     Indication: BIPOLAR DISORDER
  4. CLONIDINE [Concomitant]

REACTIONS (4)
  - AGGRESSION [None]
  - ANGER [None]
  - HOMICIDAL IDEATION [None]
  - LOSS OF CONSCIOUSNESS [None]
